FAERS Safety Report 6227468-2 (Version None)
Quarter: 2009Q2

REPORT INFORMATION
  Report Type: 
  Country: None (occurrence: None)
  Receive Date: 20090612
  Receipt Date: 20090601
  Transmission Date: 20091009
  Serious: No
  Sender: FDA-Public Use
  Company Number: PHEH2009US05546

PATIENT
  Sex: Female

DRUGS (1)
  1. RECLAST [Suspect]

REACTIONS (6)
  - ARTHRALGIA [None]
  - BLOOD CALCIUM DECREASED [None]
  - CHILLS [None]
  - INFLUENZA [None]
  - PALPITATIONS [None]
  - RHINORRHOEA [None]
